FAERS Safety Report 20676424 (Version 2)
Quarter: 2023Q1

REPORT INFORMATION
  Report Type: Spontaneous
  Country: US (occurrence: US)
  Receive Date: 20220405
  Receipt Date: 20230330
  Transmission Date: 20230418
  Serious: Yes (Other)
  Sender: FDA-Public Use
  Company Number: US-009507513-2203USA003862

PATIENT
  Sex: Female

DRUGS (2)
  1. KEYTRUDA [Suspect]
     Active Substance: PEMBROLIZUMAB
     Indication: Renal cancer
     Dosage: A TOTAL OF 14 INFUSIONS
  2. INLYTA [Suspect]
     Active Substance: AXITINIB
     Indication: Renal cancer
     Dosage: UNK
     Dates: start: 20210315

REACTIONS (7)
  - Squamous cell carcinoma of skin [Unknown]
  - Nephrectomy [Unknown]
  - Autoimmune disorder [Unknown]
  - Adverse drug reaction [Unknown]
  - Eye disorder [Unknown]
  - Memory impairment [Unknown]
  - Lichen planus [Unknown]
